FAERS Safety Report 9263634 (Version 1)
Quarter: 2013Q2

REPORT INFORMATION
  Report Type: Spontaneous
  Country: US (occurrence: US)
  Receive Date: 20130430
  Receipt Date: 20130430
  Transmission Date: 20140414
  Serious: No
  Sender: FDA-Public Use
  Company Number: US-COVIDIEN/TYCO HEALTHCARE/MALLINCKRODT-T201203923

PATIENT
  Age: 77 Year
  Sex: Female

DRUGS (1)
  1. METHYLIN EXTENDED-RELEASE [Suspect]
     Indication: ATTENTION DEFICIT/HYPERACTIVITY DISORDER
     Dosage: 20 MG QD
     Route: 048
     Dates: start: 20121105

REACTIONS (1)
  - Muscle twitching [Recovered/Resolved]
